FAERS Safety Report 17158696 (Version 1)
Quarter: 2019Q4

REPORT INFORMATION
  Report Type: Spontaneous
  Country: FR (occurrence: FR)
  Receive Date: 20191216
  Receipt Date: 20191216
  Transmission Date: 20200122
  Serious: Yes (Disabling)
  Sender: FDA-Public Use
  Company Number: NVSC2019FR064355

PATIENT
  Age: 48 Year
  Sex: Female

DRUGS (3)
  1. FLAGYL [Suspect]
     Active Substance: METRONIDAZOLE\METRONIDAZOLE HYDROCHLORIDE
     Indication: INFECTION
     Dosage: 1.5 G, QD
     Route: 048
     Dates: start: 20170919, end: 20170922
  2. LINEZOLID. [Suspect]
     Active Substance: LINEZOLID
     Indication: INFECTION
     Dosage: 1200 MG, QD
     Route: 042
     Dates: start: 20170916, end: 20170922
  3. CEFTRIAXONE. [Suspect]
     Active Substance: CEFTRIAXONE
     Indication: INFECTION
     Dosage: 1 G, QD
     Route: 042
     Dates: start: 20170919, end: 20170922

REACTIONS (1)
  - Vertigo [Not Recovered/Not Resolved]

NARRATIVE: CASE EVENT DATE: 20170921
